FAERS Safety Report 14974567 (Version 1)
Quarter: 2018Q2

REPORT INFORMATION
  Report Type: Spontaneous
  Country: GB (occurrence: GB)
  Receive Date: 20180605
  Receipt Date: 20180605
  Transmission Date: 20180711
  Serious: Yes (Life-Threatening, Hospitalization)
  Sender: FDA-Public Use
  Company Number: GB-TEVA-2018-GB-902280

PATIENT
  Age: 102 Year
  Sex: Male

DRUGS (1)
  1. NIFEDIPINE. [Suspect]
     Active Substance: NIFEDIPINE
     Indication: HYPERTENSION
     Dosage: 240
     Route: 048

REACTIONS (4)
  - Confusional state [Unknown]
  - Lethargy [Unknown]
  - Hypotension [Unknown]
  - Dizziness [Unknown]
